FAERS Safety Report 4524072-9 (Version None)
Quarter: 2004Q4

REPORT INFORMATION
  Report Type: 
  Country: None (occurrence: None)
  Receive Date: 20041209
  Receipt Date: 20041201
  Transmission Date: 20050328
  Serious: Yes (Hospitalization)
  Sender: FDA-Public Use
  Company Number: CAR 2004-015

PATIENT
  Age: 5 Year
  Sex: Male

DRUGS (1)
  1. SUCRALFATE [Suspect]
     Indication: GASTRITIS
     Dosage: 1G, ORAL
     Route: 048
     Dates: start: 20031203, end: 20040421

REACTIONS (9)
  - ATROPHY [None]
  - BLOOD ALUMINIUM INCREASED [None]
  - BONE DISORDER [None]
  - BONE MARROW DEPRESSION [None]
  - DRUG INEFFECTIVE [None]
  - FRACTURE [None]
  - INFLAMMATION [None]
  - RADICULITIS CERVICAL [None]
  - RENAL DISORDER [None]
